FAERS Safety Report 8001376-9 (Version None)
Quarter: 2011Q4

REPORT INFORMATION
  Report Type: 
  Country: None (occurrence: None)
  Receive Date: 20111222
  Receipt Date: 20111219
  Transmission Date: 20120403
  Serious: Yes (Other)
  Sender: FDA-Public Use
  Company Number: JP-PFIZER INC-2011307253

PATIENT
  Age: 81 Year
  Sex: Female

DRUGS (1)
  1. NEO-MEDROL [Suspect]
     Dosage: UNK
     Dates: start: 20111124, end: 20111216

REACTIONS (1)
  - DEAFNESS [None]
